FAERS Safety Report 5575782-6 (Version None)
Quarter: 2007Q4

REPORT INFORMATION
  Report Type: 
  Country: None (occurrence: None)
  Receive Date: 20071221
  Receipt Date: 20071210
  Transmission Date: 20080405
  Serious: Yes (Other)
  Sender: FDA-Public Use
  Company Number: 230005E07DEU

PATIENT
  Age: 46 Year
  Sex: Female
  Weight: 78 kg

DRUGS (3)
  1. REBIF [Suspect]
     Indication: MULTIPLE SCLEROSIS
     Dosage: 44 MCG, 3 IN 1 WEEKS, SUBCUTANEOUS
     Route: 058
     Dates: start: 20070803, end: 20071210
  2. PHENOXYMETHYLPENICILLIN [Concomitant]
  3. SINUPRET [Concomitant]

REACTIONS (5)
  - BRONCHITIS [None]
  - LIP SWELLING [None]
  - SIMILAR REACTION ON PREVIOUS EXPOSURE TO DRUG [None]
  - SINUSITIS [None]
  - SWELLING FACE [None]
